FAERS Safety Report 14711339 (Version 1)
Quarter: 2018Q2

REPORT INFORMATION
  Report Type: Report from Study
  Country: US (occurrence: US)
  Receive Date: 20180403
  Receipt Date: 20180403
  Transmission Date: 20180711
  Serious: Yes (Other)
  Sender: FDA-Public Use
  Company Number: US-GLAXOSMITHKLINE-US2018GSK056369

PATIENT
  Sex: Female

DRUGS (4)
  1. FARXIGA [Concomitant]
     Active Substance: DAPAGLIFLOZIN PROPANEDIOL
     Dosage: 10 MG, UNK
     Dates: start: 201605
  2. TOUJEO INSULIN [Concomitant]
     Dosage: 27 UNITS
     Dates: start: 201607
  3. ALBIGLUTIDE [Suspect]
     Active Substance: ALBIGLUTIDE
     Indication: PRODUCT USED FOR UNKNOWN INDICATION
     Dosage: 30 MG, UNK
     Dates: end: 201603
  4. GLIMEPIRIDE. [Concomitant]
     Active Substance: GLIMEPIRIDE
     Dosage: 1 MG, UNK

REACTIONS (4)
  - Thyroid mass [Unknown]
  - Medullary thyroid cancer [Unknown]
  - Labelled drug-disease interaction medication error [Unknown]
  - Contraindicated drug prescribed [Unknown]

NARRATIVE: CASE EVENT DATE: 20160115
